FAERS Safety Report 9897582 (Version 1)
Quarter: 2014Q1

REPORT INFORMATION
  Report Type: Spontaneous
  Country: US (occurrence: US)
  Receive Date: 20140214
  Receipt Date: 20140214
  Transmission Date: 20141002
  Serious: Yes (Other)
  Sender: FDA-Public Use
  Company Number: US-ASTELLAS-2014US001453

PATIENT
  Age: 86 Year
  Sex: Female

DRUGS (8)
  1. MYRBETRIQ [Suspect]
     Indication: INCONTINENCE
     Dosage: UNK
     Route: 048
     Dates: start: 20140206
  2. ENABLEX                            /01760401/ [Concomitant]
     Indication: INCONTINENCE
     Dosage: 15 MG, UID/QD
     Route: 065
     Dates: start: 2013
  3. RAMIPRIL [Concomitant]
     Indication: PRODUCT USED FOR UNKNOWN INDICATION
     Dosage: 5 MG, UID/QD
     Route: 065
  4. STOOL SOFTENER [Concomitant]
     Indication: PRODUCT USED FOR UNKNOWN INDICATION
     Dosage: UNK
     Route: 065
  5. MULTIVITAMINS, PLAIN [Concomitant]
     Indication: PRODUCT USED FOR UNKNOWN INDICATION
     Dosage: UNK
     Route: 065
  6. VITAMIN [Concomitant]
     Indication: MACULAR DEGENERATION
     Dosage: UNK
     Route: 065
  7. VITAMIN [Concomitant]
     Indication: MEMORY IMPAIRMENT
  8. IRON [Concomitant]
     Indication: PRODUCT USED FOR UNKNOWN INDICATION
     Dosage: 65 MG, UID/QD
     Route: 065

REACTIONS (3)
  - Faecal incontinence [Unknown]
  - Haematochezia [Unknown]
  - Muscle spasms [Unknown]
